FAERS Safety Report 8616872-0 (Version None)
Quarter: 2012Q3

REPORT INFORMATION
  Report Type: 
  Country: None (occurrence: None)
  Receive Date: 20120823
  Receipt Date: 20120809
  Transmission Date: 20120928
  Serious: No
  Sender: FDA-Public Use
  Company Number: US-009507513-1208USA004791

PATIENT

DRUGS (3)
  1. COZAAR [Suspect]
     Indication: BLOOD PRESSURE MANAGEMENT
     Dosage: 25 MG, QD
     Route: 048
  2. LASIX [Concomitant]
  3. BETAPACE [Concomitant]

REACTIONS (2)
  - RASH [None]
  - ALLERGY TO CHEMICALS [None]
